FAERS Safety Report 10532230 (Version 2)
Quarter: 2014Q4

REPORT INFORMATION
  Report Type: Spontaneous
  Country: US (occurrence: US)
  Receive Date: 20141021
  Receipt Date: 20141105
  Transmission Date: 20150529
  Serious: Yes (Other)
  Sender: FDA-Public Use
  Company Number: US-SA-2014SA142635

PATIENT
  Age: 54 Year
  Sex: Female

DRUGS (1)
  1. LANTUS [Suspect]
     Active Substance: INSULIN GLARGINE
     Route: 065
     Dates: start: 2000

REACTIONS (4)
  - Retinal haemorrhage [Unknown]
  - Product odour abnormal [Unknown]
  - Retinal operation [Unknown]
  - Visual impairment [Unknown]

NARRATIVE: CASE EVENT DATE: 2010
